FAERS Safety Report 21459234 (Version 2)
Quarter: 2022Q4

REPORT INFORMATION
  Report Type: Spontaneous
  Country: US (occurrence: US)
  Receive Date: 20221014
  Receipt Date: 20221018
  Transmission Date: 20230113
  Serious: No
  Sender: FDA-Public Use
  Company Number: US-BIOGEN-2022BI01161530

PATIENT
  Sex: Female
  Weight: 71 kg

DRUGS (1)
  1. TYSABRI [Suspect]
     Active Substance: NATALIZUMAB
     Indication: Multiple sclerosis
     Dosage: INFUSED OVER 1 HOUR
     Route: 050
     Dates: start: 20150128

REACTIONS (8)
  - Cognitive disorder [Unknown]
  - Cough [Unknown]
  - Constipation [Unknown]
  - Paraesthesia [Unknown]
  - Sleep disorder [Unknown]
  - Blood pressure increased [Unknown]
  - Oedema peripheral [Unknown]
  - Diarrhoea [Unknown]
